FAERS Safety Report 25687362 (Version 2)
Quarter: 2025Q3

REPORT INFORMATION
  Report Type: Spontaneous
  Country: SA (occurrence: SA)
  Receive Date: 20250816
  Receipt Date: 20250909
  Transmission Date: 20251021
  Serious: Yes (Other)
  Sender: SANOFI AVENTIS
  Company Number: SA-SA-2025SA236514

PATIENT
  Age: 21 Month
  Sex: Male
  Weight: 9.5 kg

DRUGS (2)
  1. MYOZYME [Suspect]
     Active Substance: ALGLUCOSIDASE ALFA
     Indication: Glycogen storage disease type II
     Route: 065
     Dates: start: 202401
  2. HYDROCORTISONE [Concomitant]
     Active Substance: HYDROCORTISONE
     Indication: Premedication

REACTIONS (8)
  - Hypersensitivity [Unknown]
  - Seizure [Unknown]
  - Oxygen saturation decreased [Not Recovered/Not Resolved]
  - Weight gain poor [Unknown]
  - Dysstasia [Unknown]
  - Gait disturbance [Unknown]
  - Cardiomegaly [Not Recovered/Not Resolved]
  - Therapeutic product effect decreased [Unknown]

NARRATIVE: CASE EVENT DATE: 20250101
